FAERS Safety Report 15987322 (Version 2)
Quarter: 2019Q1

REPORT INFORMATION
  Report Type: Spontaneous
  Country: DE (occurrence: DE)
  Receive Date: 20190220
  Receipt Date: 20190318
  Transmission Date: 20190418
  Serious: No
  Sender: FDA-Public Use
  Company Number: DE-ELI_LILLY_AND_COMPANY-DE201809004183

PATIENT
  Age: 62 Year
  Sex: Female

DRUGS (2)
  1. TALTZ [Suspect]
     Active Substance: IXEKIZUMAB
     Indication: PSORIASIS
     Dosage: 10 MG, WEEKLY (1/W)
     Route: 065
     Dates: start: 201806
  2. TALTZ [Suspect]
     Active Substance: IXEKIZUMAB
     Dosage: ONCE EVERY 12-14 DAYS
     Route: 065
     Dates: end: 201811

REACTIONS (2)
  - Pruritus [Unknown]
  - Off label use [Unknown]
